FAERS Safety Report 9837802 (Version 1)
Quarter: 2014Q1

REPORT INFORMATION
  Report Type: Report from Study
  Country: DE (occurrence: DE)
  Receive Date: 20140123
  Receipt Date: 20140123
  Transmission Date: 20141002
  Serious: Yes (Other)
  Sender: FDA-Public Use
  Company Number: DE-ABBVIE-14P-062-1193328-00

PATIENT
  Age: 70 Year
  Sex: Male

DRUGS (2)
  1. TRENANTONE [Suspect]
     Indication: PROSTATE CANCER
     Dates: start: 20120416
  2. AMLODIPIN [Concomitant]
     Indication: HYPERTENSION
     Dates: start: 20000101

REACTIONS (1)
  - Hyperhidrosis [Recovered/Resolved]
